FAERS Safety Report 17075879 (Version 16)
Quarter: 2020Q4

REPORT INFORMATION
  Report Type: Report from Study
  Country: CA (occurrence: CA)
  Receive Date: 20191126
  Receipt Date: 20201030
  Transmission Date: 20210113
  Serious: Yes (Death, Hospitalization, Other)
  Sender: FDA-Public Use
  Company Number: PHHY2019CA106750

PATIENT
  Age: 59 Year
  Sex: Female

DRUGS (6)
  1. AFINITOR [Suspect]
     Active Substance: EVEROLIMUS
     Indication: PANCREATIC NEUROENDOCRINE TUMOUR
     Dosage: 1 UNK, QD
     Route: 048
     Dates: start: 201912, end: 2020
  2. SANDOSTATIN LAR DEPOT [Suspect]
     Active Substance: OCTREOTIDE ACETATE
     Indication: CARCINOID TUMOUR
     Dosage: 30 MG, QMO (EVERY 4 WEEKS)
     Route: 030
     Dates: start: 20190403
  3. SANDOSTATIN LAR DEPOT [Suspect]
     Active Substance: OCTREOTIDE ACETATE
  4. INSULIN [Concomitant]
     Active Substance: INSULIN NOS
     Indication: BLOOD GLUCOSE INCREASED
     Dosage: UNK
     Route: 065
  5. SANDOSTATIN LAR DEPOT [Suspect]
     Active Substance: OCTREOTIDE ACETATE
     Dosage: 30 MG
     Route: 030
     Dates: start: 20200804
  6. EVEROLIMUS. [Suspect]
     Active Substance: EVEROLIMUS
     Indication: PANCREATIC NEUROENDOCRINE TUMOUR
     Dosage: 1 UNK, QD
     Route: 048
     Dates: start: 2020, end: 2020

REACTIONS (20)
  - General physical health deterioration [Fatal]
  - Asthenia [Fatal]
  - Vomiting [Recovering/Resolving]
  - Fluid intake reduced [Unknown]
  - Fatigue [Unknown]
  - Malaise [Unknown]
  - Pallor [Unknown]
  - Blood pressure increased [Unknown]
  - Weight decreased [Fatal]
  - Muscle atrophy [Unknown]
  - Decreased appetite [Unknown]
  - Movement disorder [Fatal]
  - Syncope [Recovering/Resolving]
  - Gait disturbance [Unknown]
  - Oedema [Unknown]
  - Hypersensitivity [Unknown]
  - Cachexia [Unknown]
  - Thirst [Unknown]
  - Injection site pain [Unknown]
  - Dehydration [Recovering/Resolving]

NARRATIVE: CASE EVENT DATE: 201911
